FAERS Safety Report 10614634 (Version 1)
Quarter: 2014Q4

REPORT INFORMATION
  Report Type: Report from Study
  Country: JP (occurrence: JP)
  Receive Date: 20141130
  Receipt Date: 20141130
  Transmission Date: 20150529
  Serious: Yes (Death, Other)
  Sender: FDA-Public Use
  Company Number: JP-BRISTOL-MYERS SQUIBB COMPANY-21644828

PATIENT
  Age: 94 Year
  Sex: Female
  Weight: 46 kg

DRUGS (1)
  1. ELIQUIS [Suspect]
     Active Substance: APIXABAN
     Indication: THROMBOSIS PROPHYLAXIS
     Route: 048
     Dates: start: 20131111, end: 20140904

REACTIONS (3)
  - Death [Fatal]
  - Hypophagia [Unknown]
  - Marasmus [Unknown]

NARRATIVE: CASE EVENT DATE: 2014
